FAERS Safety Report 8288629-4 (Version None)
Quarter: 2012Q2

REPORT INFORMATION
  Report Type: 
  Country: None (occurrence: None)
  Receive Date: 20120416
  Receipt Date: 20120412
  Transmission Date: 20120825
  Serious: Yes (Death)
  Sender: FDA-Public Use
  Company Number: IN-BRISTOL-MYERS SQUIBB COMPANY-16517278

PATIENT
  Age: 60 Year
  Sex: Male

DRUGS (3)
  1. PREDNISOLONE [Suspect]
     Dates: start: 20090901
  2. AZATHIOPRINE [Concomitant]
     Dates: start: 20110722
  3. BELATACEPT [Suspect]
     Indication: IMMUNOSUPPRESSION
     Route: 042
     Dates: start: 20070420

REACTIONS (1)
  - SUDDEN CARDIAC DEATH [None]
